FAERS Safety Report 6898701-9 (Version None)
Quarter: 2010Q3

REPORT INFORMATION
  Report Type: 
  Country: None (occurrence: None)
  Receive Date: 20100802
  Receipt Date: 20071116
  Transmission Date: 20110219
  Serious: Yes (Other)
  Sender: FDA-Public Use
  Company Number: US-PFIZER INC-2007070638

PATIENT
  Sex: Female
  Weight: 88.6 kg

DRUGS (9)
  1. LYRICA [Suspect]
     Indication: SCIATICA
     Dates: start: 20070814, end: 20070830
  2. LYRICA [Suspect]
     Indication: PAIN
  3. LYRICA [Suspect]
     Indication: NEUROPATHY PERIPHERAL
  4. LANTUS [Suspect]
     Indication: DIABETES MELLITUS
  5. GLYBURIDE [Concomitant]
  6. LISINOPRIL [Concomitant]
  7. GLUCOPHAGE [Concomitant]
  8. ACTOS [Concomitant]
  9. ZETIA [Concomitant]

REACTIONS (10)
  - DEPRESSION [None]
  - DISTURBANCE IN ATTENTION [None]
  - DIZZINESS [None]
  - DRUG INEFFECTIVE [None]
  - DRUG WITHDRAWAL SYNDROME [None]
  - DRY MOUTH [None]
  - FEAR [None]
  - INTENTIONAL DRUG MISUSE [None]
  - PAIN IN EXTREMITY [None]
  - VISION BLURRED [None]
